FAERS Safety Report 22272349 (Version 1)
Quarter: 2023Q2

REPORT INFORMATION
  Report Type: Report from Study
  Country: US (occurrence: US)
  Receive Date: 20230502
  Receipt Date: 20230502
  Transmission Date: 20230722
  Serious: Yes (Other)
  Sender: FDA-Public Use
  Company Number: US-ABBVIE-4746390

PATIENT
  Sex: Female

DRUGS (1)
  1. HUMIRA [Suspect]
     Active Substance: ADALIMUMAB
     Indication: Uveitis
     Dosage: CITRATE FREE
     Route: 058
     Dates: start: 20210329

REACTIONS (4)
  - Wrist fracture [Unknown]
  - Unevaluable event [Recovered/Resolved]
  - Rotator cuff syndrome [Unknown]
  - Post procedural complication [Unknown]
